FAERS Safety Report 14526082 (Version 2)
Quarter: 2019Q2

REPORT INFORMATION
  Report Type: Spontaneous
  Country: PL (occurrence: PL)
  Receive Date: 20180213
  Receipt Date: 20190503
  Transmission Date: 20190711
  Serious: Yes (Death, Other)
  Sender: FDA-Public Use
  Company Number: PL-MYLANLABS-2018M1009158

PATIENT
  Age: 61 Year
  Sex: Male

DRUGS (5)
  1. TEMOZOLOMIDE. [Suspect]
     Active Substance: TEMOZOLOMIDE
     Dosage: 150-200MG/M2 DAILY IN MORNING FOR 5 DAYS
     Dates: start: 201504, end: 201512
  2. KETOCONAZOLE. [Concomitant]
     Active Substance: KETOCONAZOLE
     Dosage: UNK, QD (300 TO 600 MG PER DAY)
  3. ONDANSETRON [Concomitant]
     Active Substance: ONDANSETRON
     Indication: PRODUCT USED FOR UNKNOWN INDICATION
  4. TRIMETHOPRIM. [Concomitant]
     Active Substance: TRIMETHOPRIM
     Indication: PRODUCT USED FOR UNKNOWN INDICATION
  5. TEMOZOLOMIDE. [Suspect]
     Active Substance: TEMOZOLOMIDE
     Dosage: 320 MG, QD ((150-200 MG/M2) ONCE DAILY IN THE MORNING, FOR 5 CONSECUTIVE DAYS (28-DAY CYCLE))
     Route: 048
     Dates: start: 201504, end: 201512

REACTIONS (7)
  - Pituitary-dependent Cushing^s syndrome [Fatal]
  - Therapy partial responder [Unknown]
  - Deafness [Unknown]
  - Nausea [Unknown]
  - Disease progression [Fatal]
  - Death [Fatal]
  - Off label use [Unknown]

NARRATIVE: CASE EVENT DATE: 2015
